FAERS Safety Report 21327417 (Version 1)
Quarter: 2022Q3

REPORT INFORMATION
  Report Type: Spontaneous
  Country: GB (occurrence: GB)
  Receive Date: 20220913
  Receipt Date: 20220913
  Transmission Date: 20221027
  Serious: No
  Sender: FDA-Public Use
  Company Number: None

PATIENT
  Age: 56 Year
  Sex: Female
  Weight: 110.8 kg

DRUGS (18)
  1. TOLVAPTAN [Suspect]
     Active Substance: TOLVAPTAN
     Indication: Congenital cystic kidney disease
     Dosage: 15 MILLIGRAM, QD (TABLET,UNCOATED)
     Route: 048
     Dates: start: 20181019
  2. TOLVAPTAN [Suspect]
     Active Substance: TOLVAPTAN
     Dosage: 45 MILLIGRAM, QD (TABLET ,UNCOATED)
     Route: 048
     Dates: start: 20181019
  3. TOLVAPTAN [Suspect]
     Active Substance: TOLVAPTAN
     Dosage: 30 MILLIGRAM,TABLET (UNCOATED)
     Route: 048
     Dates: start: 20181116
  4. TOLVAPTAN [Suspect]
     Active Substance: TOLVAPTAN
     Dosage: 60 MILLIGRAM,TABLET (UNCOATED)
     Route: 048
     Dates: start: 20181116
  5. TOLVAPTAN [Suspect]
     Active Substance: TOLVAPTAN
     Dosage: 30 MILLIGRAM,TABLET (UNCOATED)
     Route: 048
     Dates: start: 20181221
  6. TOLVAPTAN [Suspect]
     Active Substance: TOLVAPTAN
     Dosage: 90 MILLIGRAM,TABLET (UNCOATED)
     Route: 048
     Dates: start: 20181221
  7. TOLVAPTAN [Suspect]
     Active Substance: TOLVAPTAN
     Dosage: 30 MILLIGRAM,TABLET (UNCOATED)
     Route: 048
     Dates: start: 20190125
  8. TOLVAPTAN [Suspect]
     Active Substance: TOLVAPTAN
     Dosage: 60 MILLIGRAM,TABLET (UNCOATED)
     Route: 048
     Dates: start: 20190125
  9. TOLVAPTAN [Suspect]
     Active Substance: TOLVAPTAN
     Dosage: 30 MILLIGRAM,TABLET (UNCOATED)
     Route: 048
     Dates: start: 20190531
  10. TOLVAPTAN [Suspect]
     Active Substance: TOLVAPTAN
     Dosage: 90 MILLIGRAM,TABLET (UNCOATED)
     Route: 048
     Dates: start: 20190531
  11. TOLVAPTAN [Suspect]
     Active Substance: TOLVAPTAN
     Dosage: 15 MILLIGRAM, (TABLET,UNCOATED)
     Route: 048
     Dates: start: 20220510
  12. TOLVAPTAN [Suspect]
     Active Substance: TOLVAPTAN
     Dosage: 45 MILLIGRAM,TABLET (UNCOATED)
     Route: 048
     Dates: start: 20220510
  13. TOLVAPTAN [Suspect]
     Active Substance: TOLVAPTAN
     Dosage: 30 MILLIGRAM,TABLET (UNCOATED)
     Route: 048
     Dates: start: 20220607
  14. TOLVAPTAN [Suspect]
     Active Substance: TOLVAPTAN
     Dosage: 60 MILLIGRAM,TABLET (UNCOATED)
     Route: 048
     Dates: start: 20220607
  15. TOLVAPTAN [Suspect]
     Active Substance: TOLVAPTAN
     Dosage: 30 MILLIGRAM,TABLET (UNCOATED)
     Route: 048
     Dates: start: 20220816
  16. TOLVAPTAN [Suspect]
     Active Substance: TOLVAPTAN
     Dosage: 90 MILLIGRAM,TABLET (UNCOATED)
     Route: 048
     Dates: start: 20220816
  17. BENDROFLUMETHIAZIDE [Concomitant]
     Active Substance: BENDROFLUMETHIAZIDE
     Indication: Product used for unknown indication
     Dosage: 2.5 MILLIGRAM, QD
     Route: 048
     Dates: start: 20080214, end: 20181019
  18. RAMIPRIL [Concomitant]
     Active Substance: RAMIPRIL
     Indication: Product used for unknown indication
     Dosage: 10 MILLIGRAM, QD
     Route: 048
     Dates: start: 20080214

REACTIONS (3)
  - Nocturia [Recovered/Resolved]
  - Polydipsia [Not Recovered/Not Resolved]
  - Polyuria [Not Recovered/Not Resolved]

NARRATIVE: CASE EVENT DATE: 20181019
